FAERS Safety Report 23207698 (Version 1)
Quarter: 2023Q4

REPORT INFORMATION
  Report Type: Spontaneous
  Country: US (occurrence: US)
  Receive Date: 20231120
  Receipt Date: 20231120
  Transmission Date: 20240110
  Serious: No
  Sender: FDA-Public Use
  Company Number: US-drreddys-LIT/USA/23/0180946

PATIENT
  Age: 76 Year
  Sex: Female

DRUGS (4)
  1. NICOTINE [Suspect]
     Active Substance: NICOTINE
     Indication: Smoking cessation therapy
     Dosage: PATCHES
     Route: 062
  2. BUPROPION [Suspect]
     Active Substance: BUPROPION
     Indication: Smoking cessation therapy
  3. VARENICLINE [Suspect]
     Active Substance: VARENICLINE
     Indication: Smoking cessation therapy
  4. NICOTINE [Suspect]
     Active Substance: NICOTINE
     Indication: Smoking cessation therapy

REACTIONS (1)
  - Drug ineffective [Unknown]
